FAERS Safety Report 4379721-5 (Version None)
Quarter: 2004Q2

REPORT INFORMATION
  Report Type: 
  Country: None (occurrence: None)
  Receive Date: 20040617
  Receipt Date: 20040616
  Transmission Date: 20050107
  Serious: Yes (Hospitalization)
  Sender: FDA-Public Use
  Company Number: US-GLAXOSMITHKLINE-A0514861A

PATIENT
  Sex: Female

DRUGS (1)
  1. FLOLAN [Suspect]
     Route: 042

REACTIONS (4)
  - CENTRAL LINE INFECTION [None]
  - DYSPNOEA [None]
  - FLUSHING [None]
  - HYPOTENSION [None]
